FAERS Safety Report 4937286-0 (Version None)
Quarter: 2006Q1

REPORT INFORMATION
  Report Type: 
  Country: None (occurrence: None)
  Receive Date: 20060309
  Receipt Date: 20060301
  Transmission Date: 20060701
  Serious: Yes (Hospitalization, Disabling, Other)
  Sender: FDA-Public Use
  Company Number: US-JNJFOC-20050500070

PATIENT
  Sex: Male
  Weight: 54.89 kg

DRUGS (9)
  1. RISPERDAL [Suspect]
     Route: 048
  2. RISPERDAL [Suspect]
     Route: 048
  3. RISPERDAL [Suspect]
     Dosage: (1 MG DAILY IN MORNING; 1.5 MG DAILY AT BEDTIME)
     Route: 048
  4. RISPERDAL [Suspect]
     Dosage: (1 MG DAILY IN MORNING; 1.5 MG DAILY AT BEDTIME)
     Route: 048
  5. RISPERDAL [Suspect]
     Route: 048
  6. DEPAKOTE [Concomitant]
     Route: 048
  7. DEPAKOTE [Concomitant]
     Dosage: (250 MG TWICE DAILY; 125 MG DAILY AT BEDTIME)
     Route: 048
  8. DEPAKOTE [Concomitant]
     Dosage: (250 MG TWICE DAILY; 125 MG DAILY AT BEDTIME)
     Route: 048
  9. DEPAKOTE [Concomitant]
     Dosage: (250 MG TWICE DAILY; 375 MG DAILY AT BEDTIME)
     Route: 048

REACTIONS (12)
  - APPENDICITIS [None]
  - BACK PAIN [None]
  - BRONCHITIS [None]
  - DIABETES MELLITUS INSULIN-DEPENDENT [None]
  - DIABETIC KETOACIDOSIS [None]
  - HEPATOMEGALY [None]
  - MAJOR DEPRESSION [None]
  - PAIN [None]
  - PHARYNGITIS STREPTOCOCCAL [None]
  - PNEUMONIA [None]
  - SINUSITIS [None]
  - SOMNOLENCE [None]
